FAERS Safety Report 21736391 (Version 1)
Quarter: 2022Q4

REPORT INFORMATION
  Report Type: Spontaneous
  Country: US (occurrence: US)
  Receive Date: 20221215
  Receipt Date: 20221215
  Transmission Date: 20230113
  Serious: No
  Sender: FDA-Public Use
  Company Number: US-BAUSCHBL-2022BNL002722

PATIENT
  Age: 68 Year
  Sex: Female
  Weight: 51.756 kg

DRUGS (5)
  1. TIMOPTIC [Suspect]
     Active Substance: TIMOLOL MALEATE
     Indication: Glaucoma
     Route: 048
     Dates: start: 20221209, end: 20221209
  2. TIMOPTIC [Suspect]
     Active Substance: TIMOLOL MALEATE
  3. TYRVAYA [Concomitant]
     Active Substance: VARENICLINE TARTRATE
     Indication: Product used for unknown indication
  4. REGENER [Concomitant]
     Indication: Product used for unknown indication
     Dosage: REGENER-EYES
  5. METROGEL [Concomitant]
     Active Substance: METRONIDAZOLE
     Indication: Product used for unknown indication

REACTIONS (3)
  - Dizziness [Unknown]
  - Headache [Unknown]
  - Incorrect route of product administration [Unknown]

NARRATIVE: CASE EVENT DATE: 20221209
